FAERS Safety Report 7064603-0 (Version None)
Quarter: 2010Q4

REPORT INFORMATION
  Report Type: 
  Country: None (occurrence: None)
  Receive Date: 20101022
  Receipt Date: 20101022
  Transmission Date: 20110411
  Serious: No
  Sender: FDA-Public Use
  Company Number: None

PATIENT
  Sex: Female
  Weight: 63.5036 kg

DRUGS (2)
  1. ACYCLOVIR [Suspect]
     Indication: HERPES VIRUS INFECTION
     Dates: start: 20090101
  2. ACYCLOVIR [Suspect]
     Indication: HERPES VIRUS INFECTION
     Dates: start: 20101017

REACTIONS (4)
  - ANORECTAL DISORDER [None]
  - PARAESTHESIA [None]
  - PHARYNGEAL OEDEMA [None]
  - VAGINAL DISORDER [None]
